FAERS Safety Report 5314719-1 (Version None)
Quarter: 2007Q2

REPORT INFORMATION
  Report Type: 
  Country: None (occurrence: None)
  Receive Date: 20070427
  Receipt Date: 20070416
  Transmission Date: 20071010
  Serious: Yes (Hospitalization)
  Sender: FDA-Public Use
  Company Number: GXKR2007GB03545

PATIENT
  Age: 75 Year
  Sex: Male

DRUGS (8)
  1. MIRTAZAPINE [Suspect]
     Indication: DEPRESSION
     Dosage: 30 MG, ORAL
     Route: 048
     Dates: start: 20070323, end: 20070324
  2. ALLOPURINOL [Concomitant]
  3. ASPIRIN [Concomitant]
  4. BISOPROLOL FUMARATE [Concomitant]
  5. BUMETANIDE [Concomitant]
  6. CLOPIDOGREL [Concomitant]
  7. LEVOTHYROXINE SODIUM [Concomitant]
  8. SIMVASTATIN [Concomitant]

REACTIONS (2)
  - PURPURA [None]
  - RASH PRURITIC [None]
